FAERS Safety Report 24304200 (Version 1)
Quarter: 2024Q3

REPORT INFORMATION
  Report Type: Spontaneous
  Country: GB (occurrence: GB)
  Receive Date: 20240910
  Receipt Date: 20240910
  Transmission Date: 20241017
  Serious: Yes (Other)
  Sender: TEVA
  Company Number: GB-TEVA-VS-3230263

PATIENT
  Age: 37 Year
  Sex: Male
  Weight: 89 kg

DRUGS (1)
  1. ATORVASTATIN [Suspect]
     Active Substance: ATORVASTATIN
     Indication: Blood cholesterol
     Route: 065
     Dates: start: 20240626, end: 20240706

REACTIONS (3)
  - Liver injury [Recovered/Resolved with Sequelae]
  - Loss of personal independence in daily activities [Unknown]
  - Chromaturia [Unknown]

NARRATIVE: CASE EVENT DATE: 20240701
